FAERS Safety Report 6784541-8 (Version None)
Quarter: 2010Q2

REPORT INFORMATION
  Report Type: 
  Country: None (occurrence: None)
  Receive Date: 20100622
  Receipt Date: 20100611
  Transmission Date: 20101027
  Serious: Yes (Other)
  Sender: FDA-Public Use
  Company Number: US-JNJCH-2010011774

PATIENT
  Age: 58 Year
  Sex: Female
  Weight: 47.6 kg

DRUGS (12)
  1. CHILDREN'S BENADRYL ALLERGY [Suspect]
     Indication: HYPERSENSITIVITY
     Dosage: TEXT:15CC DAILY AT BEDTIME
     Route: 048
     Dates: start: 20080101, end: 20100501
  2. ENTOCORT EC [Concomitant]
     Indication: CROHN'S DISEASE
     Dosage: TEXT:9MG DAILY
     Route: 065
  3. FOLIC ACID [Concomitant]
     Indication: DRUG USE FOR UNKNOWN INDICATION
     Dosage: TEXT:1MG DAILY
     Route: 065
  4. VITAMIN B-12 [Concomitant]
     Indication: DRUG USE FOR UNKNOWN INDICATION
     Dosage: TEXT:1000MCG 2X MONTH
     Route: 030
  5. MAGNESIUM SULFATE [Concomitant]
     Indication: SHORT-BOWEL SYNDROME
     Dosage: TEXT:8GMS IV Q6 WEEKS
     Route: 042
  6. NORFLEX [Concomitant]
     Indication: DRUG USE FOR UNKNOWN INDICATION
     Dosage: TEXT:100MG 3X DAY
     Route: 048
  7. MAGNESIUM SALICYLATE [Concomitant]
     Indication: DRUG USE FOR UNKNOWN INDICATION
     Dosage: TEXT:600MG 3X DAY
     Route: 065
  8. ALBUTEROL [Concomitant]
     Indication: DRUG USE FOR UNKNOWN INDICATION
     Dosage: TEXT:1-2 PUFFS PRN
     Route: 055
  9. POTASSIUM CHLORIDE [Concomitant]
     Indication: SUPPLEMENTATION THERAPY
     Dosage: TEXT:10MEG BID
     Route: 065
  10. IMFERON [Concomitant]
     Indication: DRUG USE FOR UNKNOWN INDICATION
     Dosage: TEXT:1 UNIT EVERY 10 WEEK
     Route: 065
  11. OMEPRAZOLE [Concomitant]
     Indication: GASTROOESOPHAGEAL REFLUX DISEASE
     Dosage: TEXT:40MG DAILY
     Route: 065
  12. FLONASE [Concomitant]
     Indication: DRUG USE FOR UNKNOWN INDICATION
     Dosage: TEXT:50MCG PRN
     Route: 065

REACTIONS (3)
  - FOREIGN BODY [None]
  - INTESTINAL OBSTRUCTION [None]
  - PRODUCT CONTAMINATION PHYSICAL [None]
